FAERS Safety Report 11448539 (Version 1)
Quarter: 2015Q3

REPORT INFORMATION
  Report Type: Spontaneous
  Country: US (occurrence: US)
  Receive Date: 20150902
  Receipt Date: 20150902
  Transmission Date: 20151125
  Serious: No
  Sender: FDA-Public Use
  Company Number: US-BAYER-2015-408339

PATIENT
  Age: 51 Year
  Sex: Female

DRUGS (1)
  1. CLIMARA PRO [Suspect]
     Active Substance: ESTRADIOL\LEVONORGESTREL
     Indication: HORMONE REPLACEMENT THERAPY
     Dosage: 0.045 MG/DAY ESTRADIOL AND 0.015 MG/DAY LEVONORGESTREL
     Route: 062
     Dates: start: 20150813, end: 20150824

REACTIONS (3)
  - Intentional product use issue [None]
  - Product adhesion issue [None]
  - Product adhesion issue [None]

NARRATIVE: CASE EVENT DATE: 2015
